FAERS Safety Report 21200528 (Version 1)
Quarter: 2022Q3

REPORT INFORMATION
  Report Type: Report from Study
  Country: IE (occurrence: None)
  Receive Date: 20220811
  Receipt Date: 20220811
  Transmission Date: 20221026
  Serious: Yes (Hospitalization)
  Sender: FDA-Public Use
  Company Number: IE-Merck Healthcare KGaA-9342040

PATIENT
  Sex: Male

DRUGS (4)
  1. MAVENCLAD [Suspect]
     Active Substance: CLADRIBINE
     Indication: Relapsing-remitting multiple sclerosis
     Dosage: YEAR ONE WEEK ONE THERAPY: 2 DOSAGE FORM ON DAY 1 AND 1 DOSAGE FORM ON DAYS 2 TO 5
     Route: 048
     Dates: start: 20200120
  2. MAVENCLAD [Suspect]
     Active Substance: CLADRIBINE
     Dosage: YEAR ONE WEEK FIVE THERAPY: 2 DOSAGE FORM ON DAY 1 AND 1 DOSAGE FORM ON DAYS 2 TO 5
     Route: 048
     Dates: start: 20200217
  3. MAVENCLAD [Suspect]
     Active Substance: CLADRIBINE
     Dosage: YEAR TWO WEEK ONE THERAPY: 2 DOSAGE FORM ON DAY 1 AND 1 DOSAGE FORM ON DAYS 2 TO 5
     Route: 048
     Dates: start: 20210803
  4. MAVENCLAD [Suspect]
     Active Substance: CLADRIBINE
     Dosage: YEAR TWO WEEK FIVE THERAPY: 2 DOSAGE FORM ON DAY 1 AND 1 DOSAGE FORM ON DAYS 2 TO 5
     Route: 048
     Dates: start: 20210831

REACTIONS (2)
  - Fall [Unknown]
  - Cerebrovascular accident [Unknown]
